FAERS Safety Report 25731312 (Version 2)
Quarter: 2025Q4

REPORT INFORMATION
  Report Type: Spontaneous
  Country: KR (occurrence: KR)
  Receive Date: 20250827
  Receipt Date: 20251020
  Transmission Date: 20260118
  Serious: No
  Sender: PFIZER
  Company Number: KR-PFIZER INC-PV202500101932

PATIENT
  Age: 10 Year

DRUGS (1)
  1. GENOTROPIN [Suspect]
     Active Substance: SOMATROPIN
     Dosage: 6 TIMES WEEKLY
     Dates: start: 20240820

REACTIONS (2)
  - Drug dose omission by device [Unknown]
  - Device information output issue [Unknown]
